FAERS Safety Report 4320236-8 (Version None)
Quarter: 2004Q1

REPORT INFORMATION
  Report Type: 
  Country: None (occurrence: None)
  Receive Date: 20040317
  Receipt Date: 20040303
  Transmission Date: 20041129
  Serious: Yes (Other)
  Sender: FDA-Public Use
  Company Number: 2004016901

PATIENT
  Age: 29 Year
  Sex: Male

DRUGS (1)
  1. ZELDOX (CAPSULES) (ZIPRASIDONE) [Suspect]
     Indication: SCHIZOPHRENIA
     Dosage: 120 MG (BID), ORAL
     Route: 048
     Dates: start: 20040115

REACTIONS (2)
  - TOXIC SKIN ERUPTION [None]
  - VIRAL INFECTION [None]
